FAERS Safety Report 16921620 (Version 2)
Quarter: 2019Q4

REPORT INFORMATION
  Report Type: Report from Study
  Country: US (occurrence: US)
  Receive Date: 20191015
  Receipt Date: 20191112
  Transmission Date: 20200122
  Serious: Yes (Hospitalization)
  Sender: FDA-Public Use
  Company Number: US-EXELIXIS-CABO-19024103

PATIENT
  Sex: Female

DRUGS (1)
  1. CABOMETYX [Suspect]
     Active Substance: CABOZANTINIB S-MALATE
     Indication: RENAL CANCER
     Dosage: 40 MG
     Dates: end: 20191022

REACTIONS (10)
  - Dehydration [Unknown]
  - Diarrhoea [Recovered/Resolved]
  - Vomiting [Recovered/Resolved]
  - Alopecia [Unknown]
  - Renal failure [Recovered/Resolved]
  - Taste disorder [Unknown]
  - Nausea [Recovered/Resolved]
  - Malignant neoplasm progression [Unknown]
  - Back pain [Unknown]
  - Decreased appetite [Unknown]
